FAERS Safety Report 21237248 (Version 1)
Quarter: 2022Q3

REPORT INFORMATION
  Report Type: Spontaneous
  Country: IN (occurrence: IN)
  Receive Date: 20220822
  Receipt Date: 20220822
  Transmission Date: 20221027
  Serious: Yes (Other)
  Sender: FDA-Public Use
  Company Number: IN-MACLEODS PHARMACEUTICALS US LTD-MAC2022036890

PATIENT

DRUGS (2)
  1. TRIAMCINOLONE ACETONIDE [Suspect]
     Active Substance: TRIAMCINOLONE ACETONIDE
     Indication: Alopecia
     Dosage: UNK (INJECTIONS)
     Route: 065
     Dates: start: 202011
  2. TRIAMCINOLONE ACETONIDE [Suspect]
     Active Substance: TRIAMCINOLONE ACETONIDE
     Indication: Alopecia

REACTIONS (2)
  - Atypical mycobacterial infection [Recovered/Resolved]
  - Mycobacterium abscessus infection [Recovered/Resolved]

NARRATIVE: CASE EVENT DATE: 20210101
